FAERS Safety Report 12573534 (Version 1)
Quarter: 2016Q3

REPORT INFORMATION
  Report Type: Spontaneous
  Country: PR (occurrence: PR)
  Receive Date: 20160720
  Receipt Date: 20160720
  Transmission Date: 20161109
  Serious: No
  Sender: FDA-Public Use
  Company Number: PR-PFIZER INC-2016256702

PATIENT
  Age: 44 Year
  Sex: Female
  Weight: 92.99 kg

DRUGS (9)
  1. MELOXICAM. [Concomitant]
     Active Substance: MELOXICAM
     Indication: INTERVERTEBRAL DISC PROTRUSION
     Dosage: 15 MG, 2X/DAY
     Dates: start: 2015
  2. TURMERIC /01079602/ [Concomitant]
     Active Substance: TURMERIC
     Indication: INFLAMMATION
     Dosage: 500 MG PILLS MORNING AND EVENING
     Dates: start: 201603
  3. CINNAMON. [Concomitant]
     Active Substance: CINNAMON
     Indication: INFLAMMATION
     Dosage: 500 MG, UNK
  4. LYRICA [Suspect]
     Active Substance: PREGABALIN
     Indication: FIBROMYALGIA
     Dosage: 50 MG, 2X/DAY (ONCE DURING DAY,ONE DURING EVENING)
     Route: 048
     Dates: start: 201603, end: 20160627
  5. MOBIC [Concomitant]
     Active Substance: MELOXICAM
     Dosage: 15 MG, UNK
     Route: 048
  6. CYCLOBENZAPRINE [Concomitant]
     Active Substance: CYCLOBENZAPRINE
     Indication: INTERVERTEBRAL DISC PROTRUSION
     Dosage: 10 MG, AS NEEDED (ONCE A DAY)
     Route: 048
     Dates: start: 2015
  7. LYRICA [Suspect]
     Active Substance: PREGABALIN
     Indication: RHEUMATOID ARTHRITIS
  8. GINGER /01646602/ [Concomitant]
     Indication: INFLAMMATION
     Dosage: 500 MG, UNK
  9. OMEGA FISH OIL WITH OMEGA 3 [Concomitant]
     Indication: INFLAMMATION
     Dosage: 500 MG, UNK (MORNING AND EVENING)

REACTIONS (2)
  - Hypoaesthesia [Not Recovered/Not Resolved]
  - Pain in extremity [Not Recovered/Not Resolved]

NARRATIVE: CASE EVENT DATE: 20160629
